FAERS Safety Report 7619743-1 (Version None)
Quarter: 2011Q3

REPORT INFORMATION
  Report Type: 
  Country: None (occurrence: None)
  Receive Date: 20110719
  Receipt Date: 20110705
  Transmission Date: 20111222
  Serious: Yes (Hospitalization)
  Sender: FDA-Public Use
  Company Number: JP-UCBSA-036781

PATIENT
  Sex: Male

DRUGS (10)
  1. CERTOLIZUMAB PEGOL [Suspect]
     Route: 058
  2. ETODOLAC [Suspect]
     Indication: RHEUMATOID ARTHRITIS
     Route: 048
  3. ACTONEL [Suspect]
     Route: 048
  4. CERTOLIZUMAB PEGOL [Suspect]
     Indication: RHEUMATOID ARTHRITIS
     Route: 058
     Dates: start: 20100419
  5. PREDNISOLONE [Suspect]
     Route: 048
     Dates: start: 20110124
  6. LANSOPRAZOLE [Suspect]
     Indication: GASTRITIS PROPHYLAXIS
     Route: 048
  7. PREDNISOLONE [Suspect]
     Route: 048
  8. CERTOLIZUMAB PEGOL [Suspect]
     Route: 058
     Dates: start: 20091005
  9. AZULFIDINE-DU [Suspect]
     Indication: RHEUMATOID ARTHRITIS
     Route: 048
  10. THIOLA [Suspect]
     Indication: RHEUMATOID ARTHRITIS
     Route: 048

REACTIONS (1)
  - PLEURAL EFFUSION [None]
